FAERS Safety Report 23754889 (Version 1)
Quarter: 2024Q2

REPORT INFORMATION
  Report Type: Spontaneous
  Country: US (occurrence: US)
  Receive Date: 20240418
  Receipt Date: 20240418
  Transmission Date: 20240716
  Serious: Yes (Other)
  Sender: FDA-Public Use
  Company Number: US-ABBVIE-5722447

PATIENT
  Sex: Female

DRUGS (1)
  1. DIVALPROEX SODIUM [Suspect]
     Active Substance: DIVALPROEX SODIUM
     Indication: Petit mal epilepsy
     Dosage: TAKING FOR 25 YEARS
     Route: 048

REACTIONS (1)
  - Epilepsy [Unknown]
